FAERS Safety Report 13129992 (Version 1)
Quarter: 2017Q1

REPORT INFORMATION
  Report Type: Spontaneous
  Country: US (occurrence: US)
  Receive Date: 20170119
  Receipt Date: 20170119
  Transmission Date: 20170428
  Serious: Yes (Other)
  Sender: FDA-Public Use
  Company Number: US-TEVA-730845USA

PATIENT
  Sex: Female

DRUGS (3)
  1. NORETHINDRONE. [Suspect]
     Active Substance: NORETHINDRONE
     Indication: MENOPAUSAL DISORDER
     Route: 065
  2. LUPRON [Suspect]
     Active Substance: LEUPROLIDE ACETATE
     Indication: ENDOMETRIOSIS
  3. INVEGA [Suspect]
     Active Substance: PALIPERIDONE
     Route: 065

REACTIONS (6)
  - Haemangioma of liver [Unknown]
  - Hepatic adenoma [Unknown]
  - Hormone level abnormal [Unknown]
  - Bipolar disorder [Unknown]
  - Adverse drug reaction [Unknown]
  - Dysmenorrhoea [Unknown]

NARRATIVE: CASE EVENT DATE: 2016
